FAERS Safety Report 13869931 (Version 1)
Quarter: 2017Q3

REPORT INFORMATION
  Report Type: Spontaneous
  Country: RU (occurrence: RU)
  Receive Date: 20170815
  Receipt Date: 20170815
  Transmission Date: 20171127
  Serious: Yes (Death, Other)
  Sender: FDA-Public Use
  Company Number: RU-CELGENEUS-RUS-20170800239

PATIENT

DRUGS (1)
  1. OTEZLA [Suspect]
     Active Substance: APREMILAST
     Indication: PRODUCT USED FOR UNKNOWN INDICATION
     Route: 048

REACTIONS (5)
  - Completed suicide [Fatal]
  - Suicide attempt [Unknown]
  - Depression [Unknown]
  - Suicidal behaviour [Unknown]
  - Suicidal ideation [Unknown]
